FAERS Safety Report 21531216 (Version 1)
Quarter: 2022Q4

REPORT INFORMATION
  Report Type: Spontaneous
  Country: US (occurrence: US)
  Receive Date: 20221031
  Receipt Date: 20221031
  Transmission Date: 20230113
  Serious: No
  Sender: FDA-Public Use
  Company Number: US-NOVARTISTESTPH-NVSC2022US244559

PATIENT
  Sex: Female

DRUGS (1)
  1. TACROLIMUS [Suspect]
     Active Substance: TACROLIMUS
     Indication: Product used for unknown indication
     Dosage: UNK, ADMINISTERED IT ONCE
     Route: 065

REACTIONS (4)
  - Erythema [Unknown]
  - Feeling hot [Unknown]
  - Swelling face [Unknown]
  - Eye swelling [Unknown]
